FAERS Safety Report 6711669-0 (Version None)
Quarter: 2010Q2

REPORT INFORMATION
  Report Type: 
  Country: None (occurrence: None)
  Receive Date: 20100505
  Receipt Date: 20100428
  Transmission Date: 20101027
  Serious: Yes (Other)
  Sender: FDA-Public Use
  Company Number: US-ROCHE-596908

PATIENT
  Sex: Male
  Weight: 83 kg

DRUGS (4)
  1. CAPECITABINE [Suspect]
     Route: 048
     Dates: start: 20080522, end: 20090415
  2. CAPECITABINE [Suspect]
     Dosage: FOR 7 DAYS
     Route: 048
     Dates: end: 20091203
  3. VITAMIN B6 [Concomitant]
  4. PLAVIX [Concomitant]

REACTIONS (4)
  - CHEST PAIN [None]
  - HYPERAESTHESIA [None]
  - MALIGNANT NEOPLASM PROGRESSION [None]
  - STOMATITIS [None]
